FAERS Safety Report 23564613 (Version 2)
Quarter: 2024Q2

REPORT INFORMATION
  Report Type: Spontaneous
  Country: FR (occurrence: FR)
  Receive Date: 20240226
  Receipt Date: 20240511
  Transmission Date: 20240716
  Serious: Yes (Other)
  Sender: FDA-Public Use
  Company Number: None

PATIENT

DRUGS (8)
  1. SYLVANT [Suspect]
     Active Substance: SILTUXIMAB
     Indication: Cytokine release syndrome
     Dosage: 800 MILLIGRAM, TOTAL
     Route: 042
     Dates: start: 20230922, end: 20230922
  2. SYLVANT [Suspect]
     Active Substance: SILTUXIMAB
     Indication: Off label use
  3. SOLU-MEDROL [Suspect]
     Active Substance: METHYLPREDNISOLONE SODIUM SUCCINATE
     Indication: Cytokine release syndrome
     Dosage: 1 MILLIGRAM, QD
     Route: 042
     Dates: start: 20230924, end: 20231012
  4. YESCARTA [Suspect]
     Active Substance: AXICABTAGENE CILOLEUCEL
     Indication: Diffuse large B-cell lymphoma stage IV
     Dosage: 1 DOSAGE FORM, TOTAL
     Route: 042
     Dates: start: 20230919, end: 20230919
  5. CYCLOPHOSPHAMIDE [Suspect]
     Active Substance: CYCLOPHOSPHAMIDE
     Indication: Diffuse large B-cell lymphoma stage IV
     Dosage: 950 MILLIGRAM, TOTAL
     Route: 042
     Dates: start: 20230914, end: 20230916
  6. FLUDARABINE PHOSPHATE [Suspect]
     Active Substance: FLUDARABINE PHOSPHATE
     Indication: Diffuse large B-cell lymphoma stage IV
     Dosage: 57 MILLIGRAM, TOTAL
     Route: 042
     Dates: start: 20230914, end: 20230916
  7. KINERET [Suspect]
     Active Substance: ANAKINRA
     Indication: Immune effector cell-associated neurotoxicity syndrome
     Dosage: 200 MILLIGRAM, Q12H
     Route: 042
     Dates: start: 20230924, end: 202309
  8. TOCILIZUMAB [Suspect]
     Active Substance: TOCILIZUMAB
     Indication: Cytokine release syndrome
     Dosage: 8 MILLIGRAM/KILOGRAM, Q12H (4 DOSES AU TOTAL)
     Route: 042
     Dates: start: 20230920, end: 20230921

REACTIONS (2)
  - BCG related cystitis [Recovered/Resolved]
  - Off label use [Recovered/Resolved]

NARRATIVE: CASE EVENT DATE: 20230922
